FAERS Safety Report 17096108 (Version 1)
Quarter: 2019Q4

REPORT INFORMATION
  Report Type: Spontaneous
  Country: US (occurrence: US)
  Receive Date: 20191202
  Receipt Date: 20191202
  Transmission Date: 20200122
  Serious: No
  Sender: FDA-Public Use
  Company Number: US-JNJFOC-20191143466

PATIENT
  Sex: Male

DRUGS (1)
  1. MENS ROGAINE EXTRA STRENGTH [Suspect]
     Active Substance: MINOXIDIL
     Indication: ALOPECIA
     Dosage: DOSE: WHATEVER THE LINE ON THE DROPPER SAID AND FREQUENCY: TWICE A DAY
     Route: 061

REACTIONS (2)
  - Heart rate increased [Recovered/Resolved]
  - Application site acne [Recovering/Resolving]
